FAERS Safety Report 5567803-1 (Version None)
Quarter: 2007Q4

REPORT INFORMATION
  Report Type: 
  Country: None (occurrence: None)
  Receive Date: 20071217
  Receipt Date: 20071016
  Transmission Date: 20080405
  Serious: Yes (Death)
  Sender: FDA-Public Use
  Company Number: 07H-163-0313578-00

PATIENT

DRUGS (1)
  1. SODIUM BICARBONATE [Suspect]
     Dates: start: 20071016

REACTIONS (2)
  - CARDIO-RESPIRATORY ARREST [None]
  - WRONG TECHNIQUE IN DRUG USAGE PROCESS [None]
